FAERS Safety Report 10963719 (Version 1)
Quarter: 2015Q1

REPORT INFORMATION
  Report Type: Spontaneous
  Country: GB (occurrence: GB)
  Receive Date: 20150328
  Receipt Date: 20150328
  Transmission Date: 20150721
  Serious: Yes (Other)
  Sender: FDA-Public Use
  Company Number: GB-AUROBINDO-AUR-APL-2015-02567

PATIENT
  Age: 17 Year
  Sex: Female

DRUGS (2)
  1. SERTRALINE [Suspect]
     Active Substance: SERTRALINE HYDROCHLORIDE
     Indication: ANXIETY
     Dosage: UNK
     Route: 065
     Dates: start: 20150304, end: 20150304
  2. THYROXINE [Concomitant]
     Active Substance: LEVOTHYROXINE
     Indication: PRODUCT USED FOR UNKNOWN INDICATION
     Dosage: UNK
     Route: 065

REACTIONS (4)
  - Anaphylactic reaction [Recovering/Resolving]
  - Rash erythematous [Recovering/Resolving]
  - Throat tightness [Recovering/Resolving]
  - Swelling face [Recovering/Resolving]

NARRATIVE: CASE EVENT DATE: 20150304
